FAERS Safety Report 15021038 (Version 1)
Quarter: 2018Q2

REPORT INFORMATION
  Report Type: Report from Study
  Country: US (occurrence: US)
  Receive Date: 20180618
  Receipt Date: 20180618
  Transmission Date: 20180711
  Serious: No
  Sender: FDA-Public Use
  Company Number: US-AMGEN-USASL2018079586

PATIENT
  Age: 66 Year
  Sex: Female

DRUGS (16)
  1. OTEZLA [Concomitant]
     Active Substance: APREMILAST
     Indication: GUTTATE PSORIASIS
  2. ECOTRIN [Concomitant]
     Active Substance: ASPIRIN
     Dosage: 80 MG, QD
  3. ENBREL [Suspect]
     Active Substance: ETANERCEPT
     Indication: PSORIASIS
     Dosage: 50 MG, 2 TIMES/WK
     Route: 065
  4. ENBREL [Suspect]
     Active Substance: ETANERCEPT
     Indication: GUTTATE PSORIASIS
  5. PRESERVISION [Concomitant]
     Active Substance: MINERALS\VITAMINS
     Dosage: UNK UNK, BID
  6. TOPRAZOL [Concomitant]
     Dosage: 40 MG, QD
  7. RANITIDINE. [Concomitant]
     Active Substance: RANITIDINE
     Dosage: 150 MG, QD
  8. ENBREL [Suspect]
     Active Substance: ETANERCEPT
     Indication: ERYTHRODERMIC PSORIASIS
  9. OTEZLA [Concomitant]
     Active Substance: APREMILAST
     Indication: ERYTHRODERMIC PSORIASIS
  10. METHYCLOTHIAZIDE. [Concomitant]
     Active Substance: METHYCLOTHIAZIDE
     Dosage: 5 MG, AS NECESSARY
  11. VITAMIN D3 [Concomitant]
     Active Substance: CHOLECALCIFEROL
     Dosage: UNK
  12. CARVEDILOL. [Concomitant]
     Active Substance: CARVEDILOL
     Dosage: UNK UNK, DAILY
  13. LISINOPRIL. [Concomitant]
     Active Substance: LISINOPRIL
     Dosage: 10 MG, QD
  14. HYDROCODONE [Concomitant]
     Active Substance: HYDROCODONE
     Dosage: UNK
  15. OTEZLA [Concomitant]
     Active Substance: APREMILAST
     Indication: PSORIASIS
     Dosage: UNK
  16. CRESTOR [Concomitant]
     Active Substance: ROSUVASTATIN CALCIUM
     Dosage: UNK UNK, DAILY

REACTIONS (3)
  - Injection site pain [Unknown]
  - Injection site pruritus [Unknown]
  - Injection site rash [Unknown]

NARRATIVE: CASE EVENT DATE: 20180611
